FAERS Safety Report 25948128 (Version 1)
Quarter: 2025Q4

REPORT INFORMATION
  Report Type: Spontaneous
  Country: US (occurrence: US)
  Receive Date: 20251022
  Receipt Date: 20251022
  Transmission Date: 20260118
  Serious: Yes (Death, Hospitalization)
  Sender: GRIFOLS
  Company Number: US-IGSA-BIG0038646

PATIENT
  Sex: Male
  Weight: 82.54 kg

DRUGS (15)
  1. PROLASTIN-C LIQUID [Suspect]
     Active Substance: .ALPHA.1-PROTEINASE INHIBITOR HUMAN
     Indication: Alpha-1 antitrypsin deficiency
     Dosage: 5020 MILLIGRAM, Q.WK.
     Route: 042
  2. BUMETANIDE [Concomitant]
     Active Substance: BUMETANIDE
     Dosage: 2 MILLIGRAM
     Route: 048
  3. POTASSIUM CHLORIDE [Concomitant]
     Active Substance: POTASSIUM CHLORIDE
     Dosage: 20 MILLIEQUIVALENT
     Route: 048
  4. DIPHENHYDRAMINE HYDROCHLORIDE [Concomitant]
     Active Substance: DIPHENHYDRAMINE HYDROCHLORIDE
     Dosage: UNK
  5. EPINEPHRINE [Concomitant]
     Active Substance: EPINEPHRINE
  6. HEPARIN LOCK FLUSH [Concomitant]
     Active Substance: HEPARIN SODIUM
     Dosage: UNK
  7. OXYGEN [Concomitant]
     Active Substance: OXYGEN
     Dosage: 20 MILLIGRAM
     Route: 048
  8. MIDODRINE HYDROCHLORIDE [Concomitant]
     Active Substance: MIDODRINE HYDROCHLORIDE
     Dosage: 2.5 MILLIGRAM
     Route: 048
  9. SPIRONOLACTONE [Concomitant]
     Active Substance: SPIRONOLACTONE
     Dosage: 25 MILLIGRAM
     Route: 048
  10. BENZONATATE [Concomitant]
     Active Substance: BENZONATATE
     Dosage: 100 MILLIGRAM
     Route: 048
  11. TRELEGY ELLIPTA [Concomitant]
     Active Substance: FLUTICASONE FUROATE\UMECLIDINIUM BROMIDE\VILANTEROL TRIFENATATE
     Dosage: 200-62.5
  12. ALBUTEROL SULFATE\IPRATROPIUM BROMIDE [Concomitant]
     Active Substance: ALBUTEROL SULFATE\IPRATROPIUM BROMIDE
  13. ALBUTEROL SULFATE [Concomitant]
     Active Substance: ALBUTEROL SULFATE
     Dosage: 90 MICROGRAM
  14. FUROSEMIDE [Concomitant]
     Active Substance: FUROSEMIDE
     Dosage: 20 MILLIGRAM
  15. POTASSIUM CHLORIDE [Concomitant]
     Active Substance: POTASSIUM CHLORIDE
     Dosage: 20 MILLIEQUIVALENT

REACTIONS (3)
  - Diarrhoea [Fatal]
  - Haemoptysis [Fatal]
  - Hernia [Fatal]
